FAERS Safety Report 13625446 (Version 3)
Quarter: 2017Q4

REPORT INFORMATION
  Report Type: Spontaneous
  Country: US (occurrence: US)
  Receive Date: 20170608
  Receipt Date: 20171030
  Transmission Date: 20180320
  Serious: No
  Sender: FDA-Public Use
  Company Number: US-ACCORD-048752

PATIENT
  Age: 29 Year
  Sex: Male
  Weight: 100.7 kg

DRUGS (3)
  1. LISINOPRIL. [Suspect]
     Active Substance: LISINOPRIL
     Indication: HYPERTENSION
     Route: 048
  2. ESCITALOPRAM ACCORD [Suspect]
     Active Substance: ESCITALOPRAM OXALATE
     Indication: ANXIETY
     Dosage: DOSE/STRENGTH: 20 MG
     Route: 048
  3. AMLODIPINE [Suspect]
     Active Substance: AMLODIPINE BESYLATE
     Indication: HYPERTENSION
     Route: 048

REACTIONS (1)
  - Alcohol test false positive [Unknown]

NARRATIVE: CASE EVENT DATE: 20170208
